FAERS Safety Report 8136635-2 (Version None)
Quarter: 2012Q1

REPORT INFORMATION
  Report Type: 
  Country: None (occurrence: None)
  Receive Date: 20120214
  Receipt Date: 20120209
  Transmission Date: 20120608
  Serious: Yes (Hospitalization)
  Sender: FDA-Public Use
  Company Number: US-AMGEN-USACT2012006409

PATIENT
  Age: 70 Year
  Sex: Male

DRUGS (12)
  1. XGEVA [Suspect]
     Indication: BONE GIANT CELL TUMOUR
     Dosage: 120 MG, Q4WK
     Route: 058
     Dates: start: 20110913
  2. PRILOSEC [Concomitant]
     Dosage: UNK
     Dates: start: 19960501
  3. LISINOPRIL [Concomitant]
     Dosage: 40 MG, QD
     Dates: start: 19810901
  4. SERTRALINE HYDROCHLORIDE [Concomitant]
     Dosage: 50 MG, QD
     Dates: start: 19750401
  5. LOVENOX [Concomitant]
     Dosage: UNK UNK, BID
     Dates: start: 20111225
  6. GLYBURIDE [Concomitant]
     Dosage: 5 MG, QD
     Dates: start: 19900501
  7. AZITHROMYCIN [Concomitant]
     Dosage: 250 MG, QD
     Dates: start: 20111206
  8. ASPIRIN [Concomitant]
     Dosage: 81 MG, QD
     Dates: start: 20080201
  9. COUMADIN [Concomitant]
     Dosage: 6 MG, QD
     Dates: start: 20080201
  10. SIMVASTATIN [Concomitant]
     Dosage: 80 MG, QD
     Dates: start: 19820201
  11. HYDROCHLOROTHIAZIDE [Concomitant]
     Dosage: 25 MG, QD
     Dates: start: 19970301
  12. ATENOLOL [Concomitant]
     Dosage: 25 MG, QD
     Dates: start: 19790401

REACTIONS (1)
  - BACTERAEMIA [None]
